FAERS Safety Report 7156348-3 (Version None)
Quarter: 2010Q4

REPORT INFORMATION
  Report Type: 
  Country: None (occurrence: None)
  Receive Date: 20101214
  Receipt Date: 20101208
  Transmission Date: 20110411
  Serious: Yes (Other)
  Sender: FDA-Public Use
  Company Number: JP-PFIZER INC-2010150170

PATIENT
  Age: 94 Year
  Sex: Male
  Weight: 38 kg

DRUGS (6)
  1. AMLODIPINE BESYLATE [Suspect]
     Indication: HYPERTENSION
     Dosage: 5 MG, 1X/DAY
     Dates: start: 20100220, end: 20100422
  2. MAGNESIUM OXIDE [Concomitant]
     Indication: HYPERTENSION
     Dosage: 330 MG, 2X/DAY
     Route: 048
     Dates: start: 20090508, end: 20100731
  3. MAGNESIUM OXIDE [Concomitant]
     Indication: CONSTIPATION
  4. TELMISARTAN [Concomitant]
     Indication: HYPERTENSION
     Dosage: 40 MG, 1X/DAY
     Route: 048
     Dates: start: 20080414
  5. TELMISARTAN [Concomitant]
     Indication: CONSTIPATION
  6. MECOBALAMIN [Concomitant]
     Indication: NEURALGIA
     Dosage: 0.5 MG, 3X/DAY
     Route: 048
     Dates: start: 20100119

REACTIONS (4)
  - DISSEMINATED INTRAVASCULAR COAGULATION [None]
  - MYELODYSPLASTIC SYNDROME [None]
  - PLATELET COUNT DECREASED [None]
  - PURPURA [None]
